FAERS Safety Report 19254386 (Version 2)
Quarter: 2021Q2

REPORT INFORMATION
  Report Type: Report from Study
  Country: CH (occurrence: CH)
  Receive Date: 20210513
  Receipt Date: 20210524
  Transmission Date: 20210717
  Serious: Yes (Hospitalization)
  Sender: FDA-Public Use
  Company Number: CH-ROCHE-2829240

PATIENT
  Age: 72 Year
  Sex: Male
  Weight: 71.1 kg

DRUGS (7)
  1. DIAMICRON [Concomitant]
     Active Substance: GLICLAZIDE
  2. JANUMET [Concomitant]
     Active Substance: METFORMIN HYDROCHLORIDE\SITAGLIPTIN PHOSPHATE
  3. CRESTOR [Concomitant]
     Active Substance: ROSUVASTATIN CALCIUM
  4. ATEZOLIZUMAB. [Suspect]
     Active Substance: ATEZOLIZUMAB
     Indication: HEPATOCELLULAR CARCINOMA
     Dosage: MOST RECENT DOSE PRIOR TO EVENT: 13/APR/2021??DRUG INTERRUPTED: 04/MAY/2021
     Route: 042
     Dates: start: 20191122
  5. XL184 [Suspect]
     Active Substance: CABOZANTINIB
     Indication: HEPATOCELLULAR CARCINOMA
     Dosage: MOST RECENT DOSE PRIOR TO EVENT: 29/APR/2021?DRUG INTERRUPTED: 30/APR/2021
     Route: 048
     Dates: start: 20191122
  6. TIROSINT [Concomitant]
     Active Substance: LEVOTHYROXINE SODIUM
  7. SITAGLIPTIN [Concomitant]
     Active Substance: SITAGLIPTIN

REACTIONS (1)
  - Gastroenteritis clostridial [Recovered/Resolved]

NARRATIVE: CASE EVENT DATE: 20210429
